FAERS Safety Report 14327950 (Version 2)
Quarter: 2018Q3

REPORT INFORMATION
  Report Type: Spontaneous
  Country: ES (occurrence: ES)
  Receive Date: 20171227
  Receipt Date: 20180709
  Transmission Date: 20181010
  Serious: Yes (Death)
  Sender: FDA-Public Use
  Company Number: ES-JNJFOC-20171230847

PATIENT
  Age: 52 Year
  Sex: Male

DRUGS (13)
  1. OLANZAPINE. [Concomitant]
     Active Substance: OLANZAPINE
     Indication: PSYCHOTIC DISORDER
     Route: 048
     Dates: start: 20170418
  2. TRANXILIUM [Concomitant]
     Active Substance: CLORAZEPATE DIPOTASSIUM
     Indication: PSYCHOTIC DISORDER
     Route: 048
     Dates: start: 20170418
  3. SINOGAN [Concomitant]
     Active Substance: LEVOMEPROMAZINE
     Indication: MANIA
     Route: 048
     Dates: start: 20170418
  4. TRANXILIUM [Concomitant]
     Active Substance: CLORAZEPATE DIPOTASSIUM
     Indication: MANIA
     Route: 048
     Dates: start: 20170920
  5. XEPLION [Suspect]
     Active Substance: PALIPERIDONE PALMITATE
     Indication: PSYCHOTIC DISORDER
     Route: 030
     Dates: start: 20170505
  6. XEPLION [Suspect]
     Active Substance: PALIPERIDONE PALMITATE
     Indication: MANIA
     Route: 030
     Dates: start: 20170505
  7. TRAMADOL HYDROCHLORIDE. [Concomitant]
     Active Substance: TRAMADOL HYDROCHLORIDE
     Indication: MANIA
     Route: 065
     Dates: start: 20170112
  8. RILAST [Concomitant]
     Active Substance: BUDESONIDE\FORMOTEROL
     Route: 055
     Dates: start: 20171106
  9. SINOGAN [Concomitant]
     Active Substance: LEVOMEPROMAZINE
     Indication: PSYCHOTIC DISORDER
     Route: 048
     Dates: start: 20170418
  10. TRANXILIUM [Concomitant]
     Active Substance: CLORAZEPATE DIPOTASSIUM
     Indication: MANIA
     Route: 048
     Dates: start: 20170418
  11. OMEPRAZOLE. [Concomitant]
     Active Substance: OMEPRAZOLE
     Route: 048
  12. IBUPROFENO [Concomitant]
     Active Substance: IBUPROFEN
     Route: 048
     Dates: start: 20170418
  13. OLANZAPINE. [Concomitant]
     Active Substance: OLANZAPINE
     Indication: MANIA
     Route: 048
     Dates: start: 20170418

REACTIONS (4)
  - Cardio-respiratory arrest [Fatal]
  - Sudden death [Fatal]
  - Off label use [Unknown]
  - Inappropriate schedule of drug administration [Unknown]

NARRATIVE: CASE EVENT DATE: 20170505
